FAERS Safety Report 8018529-6 (Version None)
Quarter: 2012Q1

REPORT INFORMATION
  Report Type: 
  Country: None (occurrence: None)
  Receive Date: 20120103
  Receipt Date: 20111219
  Transmission Date: 20120608
  Serious: Yes (Disabling)
  Sender: FDA-Public Use
  Company Number: GB-UCBSA-042877

PATIENT
  Sex: Female
  Weight: 60 kg

DRUGS (6)
  1. KEPPRA [Suspect]
     Indication: EPILEPSY
     Route: 048
     Dates: start: 20050427
  2. CLONAZEPAM [Concomitant]
     Indication: TONIC CLONIC MOVEMENTS
     Route: 048
     Dates: start: 20050601
  3. ACETAMINOPHEN AND CODEINE PHOSPHATE [Concomitant]
     Indication: PAIN
     Dosage: 30/500 4X2 INTAKES PER DAY
     Route: 048
     Dates: start: 20080523
  4. IBUPROFEN [Concomitant]
     Indication: PAIN
     Route: 048
     Dates: start: 20040330
  5. KEPPRA [Suspect]
     Indication: TONIC CLONIC MOVEMENTS
     Route: 048
     Dates: start: 20050427
  6. OMEPRAZOLE [Concomitant]
     Indication: DYSPEPSIA
     Route: 048
     Dates: start: 20080104

REACTIONS (3)
  - AMNESIA [None]
  - COSTOCHONDRITIS [None]
  - ADVERSE DRUG REACTION [None]
